FAERS Safety Report 16924300 (Version 1)
Quarter: 2019Q4

REPORT INFORMATION
  Report Type: Spontaneous
  Country: US (occurrence: US)
  Receive Date: 20191016
  Receipt Date: 20191016
  Transmission Date: 20200122
  Serious: Yes (Other)
  Sender: FDA-Public Use
  Company Number: US-PFIZER INC-2019442294

PATIENT
  Age: 84 Year
  Sex: Female

DRUGS (1)
  1. VFEND [Suspect]
     Active Substance: VORICONAZOLE
     Dosage: 9 DF, 2X/DAY

REACTIONS (2)
  - Off label use [Unknown]
  - Chronic lymphocytic leukaemia [Unknown]
